FAERS Safety Report 17436731 (Version 1)
Quarter: 2020Q1

REPORT INFORMATION
  Report Type: Spontaneous
  Country: DE (occurrence: DE)
  Receive Date: 20200219
  Receipt Date: 20200219
  Transmission Date: 20200409
  Serious: Yes (Other)
  Sender: FDA-Public Use
  Company Number: DE-BAYER-2020-007148

PATIENT
  Age: 19 Year
  Sex: Female
  Weight: 68 kg

DRUGS (3)
  1. SALBUHEXAL [Concomitant]
     Active Substance: ALBUTEROL
     Dosage: UNK UNK, PRN
     Route: 055
  2. QLAIRA FILMTABLETTEN [Suspect]
     Active Substance: DIENOGEST\ESTRADIOL VALERATE
     Dosage: 1 DF, QD
     Route: 048
     Dates: start: 201910, end: 201912
  3. MAXIM (DIENOGEST/ETHINYLESTRADIOL) [Suspect]
     Active Substance: DIENOGEST\ETHINYL ESTRADIOL
     Dosage: 1 DF, QD
     Route: 048
     Dates: start: 201609, end: 201909

REACTIONS (2)
  - Night sweats [Recovered/Resolved]
  - Hypoglycaemia [Recovered/Resolved]

NARRATIVE: CASE EVENT DATE: 2019
